FAERS Safety Report 19806634 (Version 4)
Quarter: 2021Q4

REPORT INFORMATION
  Report Type: Spontaneous
  Country: US (occurrence: None)
  Receive Date: 20210909
  Receipt Date: 20211119
  Transmission Date: 20220303
  Serious: Yes (Other)
  Sender: FDA-Public Use
  Company Number: US-FARMAPROD-202108-1467

PATIENT
  Sex: Male

DRUGS (13)
  1. OXERVATE [Suspect]
     Active Substance: CENEGERMIN-BKBJ
     Indication: Neurotrophic keratopathy
     Route: 047
     Dates: start: 20210729, end: 20210914
  2. OXERVATE [Suspect]
     Active Substance: CENEGERMIN-BKBJ
     Indication: Ulcerative keratitis
     Route: 047
     Dates: start: 20210929
  3. MOXATAG [Concomitant]
     Active Substance: AMOXICILLIN
  4. REFRESH LIQUIGEL [Concomitant]
     Active Substance: CARBOXYMETHYLCELLULOSE SODIUM
  5. VALTREX [Concomitant]
     Active Substance: VALACYCLOVIR HYDROCHLORIDE
     Route: 048
     Dates: start: 20210816
  6. PREDNISOLONE-NEPAFENAC [Concomitant]
  7. VANCOMYCIN [Concomitant]
     Active Substance: VANCOMYCIN
     Route: 047
     Dates: start: 20210816
  8. TOBRAMYCIN [Concomitant]
     Active Substance: TOBRAMYCIN
     Route: 047
     Dates: start: 20210816
  9. TYLENOL [Concomitant]
     Active Substance: ACETAMINOPHEN
  10. PREDNISOLONE ACETATE [Concomitant]
     Active Substance: PREDNISOLONE ACETATE
     Route: 047
     Dates: start: 20210816
  11. AUGMENTIN [Concomitant]
     Active Substance: AMOXICILLIN\CLAVULANATE POTASSIUM
     Route: 048
     Dates: start: 20210816
  12. BACTRIM [Concomitant]
     Active Substance: SULFAMETHOXAZOLE\TRIMETHOPRIM
     Route: 048
     Dates: start: 20210816
  13. ERYTHROMYCIN [Concomitant]
     Active Substance: ERYTHROMYCIN
     Route: 047
     Dates: start: 20210816

REACTIONS (3)
  - Nasopharyngeal surgery [Unknown]
  - Eye abscess [Unknown]
  - Infection [Unknown]
